FAERS Safety Report 20837169 (Version 4)
Quarter: 2022Q2

REPORT INFORMATION
  Report Type: Spontaneous
  Country: FR (occurrence: FR)
  Receive Date: 20220517
  Receipt Date: 20220616
  Transmission Date: 20220721
  Serious: Yes (Life-Threatening, Hospitalization, Other)
  Sender: FDA-Public Use
  Company Number: FR-MLMSERVICE-20220429-3517440-1

PATIENT
  Age: 55 Year
  Sex: Male
  Weight: 78 kg

DRUGS (10)
  1. QUETIAPINE [Suspect]
     Active Substance: QUETIAPINE
     Indication: Persistent depressive disorder
     Dosage: 1 G OF QUETIAPINE INSTEAD OF 120 MG AND 100 MG DAILY
     Route: 048
     Dates: start: 201803
  2. QUETIAPINE [Suspect]
     Active Substance: QUETIAPINE
     Indication: Depression
     Dosage: 50 MILLIGRAM, ONCE A DAY
     Route: 048
  3. DULOXETINE [Suspect]
     Active Substance: DULOXETINE
     Indication: Persistent depressive disorder
     Dosage: DOSES INGESTED WERE BETWEEN 1.6 G AND 2.4 G
     Route: 048
     Dates: start: 201803
  4. DULOXETINE [Suspect]
     Active Substance: DULOXETINE
     Indication: Depression
     Dosage: 60 MILLIGRAM
     Route: 048
  5. CYAMEMAZINE [Concomitant]
     Active Substance: CYAMEMAZINE
     Indication: Persistent depressive disorder
     Dosage: 25 MILLIGRAM, ONCE A DAY
     Route: 065
  6. CYAMEMAZINE [Concomitant]
     Active Substance: CYAMEMAZINE
     Indication: Depression
  7. DIAZEPAM [Concomitant]
     Active Substance: DIAZEPAM
     Indication: Persistent depressive disorder
     Dosage: 10 MILLIGRAM, ONCE A DAY
     Route: 065
  8. DIAZEPAM [Concomitant]
     Active Substance: DIAZEPAM
     Indication: Depression
  9. LORMETAZEPAM [Concomitant]
     Active Substance: LORMETAZEPAM
     Indication: Persistent depressive disorder
     Dosage: 2 MILLIGRAM, ONCE A DAY
     Route: 065
  10. LORMETAZEPAM [Concomitant]
     Active Substance: LORMETAZEPAM
     Indication: Depression

REACTIONS (14)
  - Toxicity to various agents [Recovered/Resolved]
  - Hypotension [Recovered/Resolved]
  - Intentional overdose [Recovered/Resolved]
  - Nervous system disorder [Recovered/Resolved]
  - Cardiac failure [Recovered/Resolved]
  - Miosis [Recovered/Resolved]
  - Respiratory failure [Recovered/Resolved]
  - Hyperhidrosis [Recovered/Resolved]
  - Lactic acidosis [Recovered/Resolved]
  - Sinus tachycardia [Recovered/Resolved]
  - Suicide attempt [Recovered/Resolved]
  - Tachycardia [Recovered/Resolved]
  - Coma [Recovered/Resolved]
  - Respiratory distress [Recovered/Resolved]

NARRATIVE: CASE EVENT DATE: 20180301
